FAERS Safety Report 5905248-2 (Version None)
Quarter: 2008Q4

REPORT INFORMATION
  Report Type: 
  Country: None (occurrence: None)
  Receive Date: 20081001
  Receipt Date: 20080911
  Transmission Date: 20090506
  Serious: Yes (Other)
  Sender: FDA-Public Use
  Company Number: GB-PFIZER INC-2008081797

PATIENT
  Age: 70 Year
  Sex: Male

DRUGS (7)
  1. DETRUSITOL XL [Suspect]
     Indication: BLADDER DISORDER
     Route: 048
  2. LEVODOPA [Concomitant]
  3. CARBIDOPA [Concomitant]
  4. CREON [Concomitant]
     Route: 048
  5. CITALOPRAM [Concomitant]
  6. COENZYME Q10 [Concomitant]
  7. PROPRANOLOL [Concomitant]

REACTIONS (2)
  - FATIGUE [None]
  - PARKINSONISM [None]
